FAERS Safety Report 13465623 (Version 1)
Quarter: 2017Q2

REPORT INFORMATION
  Report Type: Report from Study
  Country: IN (occurrence: IN)
  Receive Date: 20170421
  Receipt Date: 20170421
  Transmission Date: 20170830
  Serious: Yes (Hospitalization)
  Sender: FDA-Public Use
  Company Number: IN-CIPLA LTD.-2017IN02353

PATIENT

DRUGS (1)
  1. ERLOCIP [Suspect]
     Active Substance: ERLOTINIB
     Indication: PANCREATIC DISORDER
     Dosage: 100 MG, QD
     Route: 048

REACTIONS (7)
  - Malaise [Unknown]
  - Abdominal pain upper [Unknown]
  - Vomiting [Unknown]
  - Pain [Unknown]
  - Drug intolerance [Unknown]
  - Genital swelling [Unknown]
  - Asthenia [Unknown]
